FAERS Safety Report 23182721 (Version 2)
Quarter: 2023Q4

REPORT INFORMATION
  Report Type: Spontaneous
  Country: US (occurrence: US)
  Receive Date: 20231114
  Receipt Date: 20231120
  Transmission Date: 20240110
  Serious: Yes (Other)
  Sender: FDA-Public Use
  Company Number: US-PFIZER INC-202300361938

PATIENT
  Age: 68 Year
  Sex: Female
  Weight: 57.38 kg

DRUGS (1)
  1. PAXLOVID [Suspect]
     Active Substance: NIRMATRELVIR\RITONAVIR
     Indication: COVID-19 treatment
     Dosage: 4 DF, 2X/DAY (1ST TIME SHE TOOK 4 TABLETS; 3 PINKS AND 1 WHITE, AT NIGHT AND IN THE MORNING)
     Dates: start: 20231107

REACTIONS (8)
  - Diabetes mellitus [Unknown]
  - Dysgeusia [Recovering/Resolving]
  - Nervousness [Recovering/Resolving]
  - Hyperhidrosis [Recovering/Resolving]
  - Incorrect dosage administered [Unknown]
  - Product packaging confusion [Unknown]
  - Product packaging issue [Unknown]
  - Poor quality product administered [Unknown]

NARRATIVE: CASE EVENT DATE: 20231101
